FAERS Safety Report 12144036 (Version 4)
Quarter: 2016Q3

REPORT INFORMATION
  Report Type: Report from Study
  Country: None (occurrence: JP)
  Receive Date: 20160304
  Receipt Date: 20160809
  Transmission Date: 20161109
  Serious: No
  Sender: FDA-Public Use
  Company Number: JP-BIOVITRUM-2015JP0342

PATIENT
  Age: 5 Month
  Sex: Male
  Weight: 6 kg

DRUGS (9)
  1. ORFADIN [Suspect]
     Active Substance: NITISINONE
     Dosage: 6 MG DAILY
     Route: 048
     Dates: start: 20150508, end: 20150707
  2. ORFADIN [Suspect]
     Active Substance: NITISINONE
     Route: 048
     Dates: start: 20150708
  3. INCREMIN [Concomitant]
     Active Substance: FERRIC PYROPHOSPHATE
     Route: 048
     Dates: end: 20150513
  4. PANVITAN [Concomitant]
     Route: 048
  5. JUVELA [Concomitant]
     Active Substance: .ALPHA.-TOCOPHEROL\RETINOL
     Route: 048
  6. URSO [Concomitant]
     Active Substance: URSODIOL
     Route: 048
  7. PHENOBAL [Concomitant]
     Active Substance: PHENOBARBITAL
     Route: 048
  8. CRAVIT [Concomitant]
     Active Substance: LEVOFLOXACIN
     Route: 048
     Dates: start: 20150518
  9. ORFADIN [Suspect]
     Active Substance: NITISINONE
     Indication: TYROSINAEMIA
     Dates: start: 20150110, end: 20150507

REACTIONS (2)
  - Conjunctivitis [Recovering/Resolving]
  - Intentional product misuse [Unknown]

NARRATIVE: CASE EVENT DATE: 20150518
